FAERS Safety Report 9449812 (Version 1)
Quarter: 2013Q3

REPORT INFORMATION
  Report Type: Report from Study
  Country: US (occurrence: US)
  Receive Date: 20130809
  Receipt Date: 20130809
  Transmission Date: 20140515
  Serious: Yes (Other)
  Sender: FDA-Public Use
  Company Number: US-JNJFOC-20130801659

PATIENT
  Sex: Female

DRUGS (1)
  1. SIMPONI [Suspect]
     Indication: RHEUMATOID ARTHRITIS
     Dosage: STARTED 2 YEARS AGO (FROM THE TIME OF THE REPORT)
     Route: 058
     Dates: start: 2011

REACTIONS (1)
  - Adverse drug reaction [Unknown]
